FAERS Safety Report 20848631 (Version 1)
Quarter: 2022Q2

REPORT INFORMATION
  Report Type: Spontaneous
  Country: US (occurrence: US)
  Receive Date: 20220519
  Receipt Date: 20220519
  Transmission Date: 20220721
  Serious: No
  Sender: FDA-Public Use
  Company Number: US-BAYER-2022A068211

PATIENT
  Age: 29 Year
  Sex: Female

DRUGS (2)
  1. CIPRO [Suspect]
     Active Substance: CIPROFLOXACIN HYDROCHLORIDE
     Indication: Urinary tract infection
     Dosage: UNK
     Route: 048
     Dates: start: 20220404
  2. PLAN B [Suspect]
     Active Substance: LEVONORGESTREL
     Dosage: UNK
     Route: 048
     Dates: start: 20220416

REACTIONS (1)
  - Vaginal haemorrhage [None]

NARRATIVE: CASE EVENT DATE: 20220421
